FAERS Safety Report 18793631 (Version 1)
Quarter: 2021Q1

REPORT INFORMATION
  Report Type: Spontaneous
  Country: US (occurrence: US)
  Receive Date: 20210126
  Receipt Date: 20210126
  Transmission Date: 20210419
  Serious: Yes (Disabling, Other)
  Sender: FDA-Public Use
  Company Number: None

PATIENT
  Age: 28 Year
  Sex: Female
  Weight: 68.04 kg

DRUGS (1)
  1. KYLEENA [Suspect]
     Active Substance: LEVONORGESTREL
     Indication: CONTRACEPTION

REACTIONS (7)
  - Anxiety [None]
  - Depression [None]
  - Irritable bowel syndrome [None]
  - Mood swings [None]
  - Depersonalisation/derealisation disorder [None]
  - Syncope [None]
  - Palpitations [None]

NARRATIVE: CASE EVENT DATE: 20190630
